FAERS Safety Report 6909120-0 (Version None)
Quarter: 2010Q3

REPORT INFORMATION
  Report Type: 
  Country: None (occurrence: None)
  Receive Date: 20100716
  Receipt Date: 20090122
  Transmission Date: 20110219
  Serious: Yes (Hospitalization, Other)
  Sender: FDA-Public Use
  Company Number: 2009159658

PATIENT
  Age: 49 Year
  Sex: Female

DRUGS (9)
  1. CELEBREX [Suspect]
     Indication: ARTHRITIS
     Dosage: 200 MG
     Dates: start: 20010101
  2. CELEBREX [Suspect]
     Indication: NECK PAIN
     Dosage: 200 MG
     Dates: start: 20010101
  3. BEXTRA [Suspect]
     Indication: ARTHRITIS
     Dosage: 20 MG, 1X/DAY
     Dates: start: 20020709, end: 20040501
  4. BEXTRA [Suspect]
     Indication: PAIN
     Dosage: 20 MG, 1X/DAY
     Dates: start: 20020709, end: 20040501
  5. HYDROCHLOROTHIAZIDE [Concomitant]
  6. VALIUM [Concomitant]
  7. LORTAB [Concomitant]
  8. ALBUTEROL [Concomitant]
  9. PAXIL [Concomitant]

REACTIONS (1)
  - CEREBROVASCULAR ACCIDENT [None]
